FAERS Safety Report 24533008 (Version 1)
Quarter: 2024Q4

REPORT INFORMATION
  Report Type: Spontaneous
  Country: GB (occurrence: GB)
  Receive Date: 20241022
  Receipt Date: 20241022
  Transmission Date: 20250115
  Serious: Yes (Other)
  Sender: SANDOZ
  Company Number: None

PATIENT
  Sex: Female

DRUGS (2)
  1. FLUCLOXACILLIN [Suspect]
     Active Substance: FLUCLOXACILLIN
     Indication: Localised infection
     Dosage: 500 MG, Q6H
     Route: 065
  2. METHOTREXATE [Suspect]
     Active Substance: METHOTREXATE
     Indication: Arthritis
     Dosage: 10 MG
     Route: 065

REACTIONS (7)
  - Gastrooesophageal reflux disease [Unknown]
  - Soft tissue swelling [Recovering/Resolving]
  - Insomnia [Unknown]
  - Nausea [Unknown]
  - Diarrhoea [Unknown]
  - Urticaria [Recovering/Resolving]
  - Pruritus [Unknown]
